FAERS Safety Report 11127332 (Version 1)
Quarter: 2015Q2

REPORT INFORMATION
  Report Type: Spontaneous
  Country: US (occurrence: None)
  Receive Date: 20150520
  Receipt Date: 20150520
  Transmission Date: 20150821
  Serious: Yes (Other)
  Sender: FDA-Public Use
  Company Number: None

PATIENT
  Weight: 26.4 kg

DRUGS (1)
  1. EXJADE [Suspect]
     Active Substance: DEFERASIROX
     Indication: IRON OVERLOAD
     Dosage: EXJADE 500 ONE TAB DAILY PO?EXPIRATION DATE: 06-31-2017
     Route: 048
     Dates: start: 20150331

REACTIONS (1)
  - Rash pruritic [None]
